FAERS Safety Report 6759596-7 (Version None)
Quarter: 2010Q2

REPORT INFORMATION
  Report Type: 
  Country: None (occurrence: None)
  Receive Date: 20100608
  Receipt Date: 20100528
  Transmission Date: 20101027
  Serious: Yes (Hospitalization)
  Sender: FDA-Public Use
  Company Number: DE-BIOGENIDEC-2010BI017887

PATIENT
  Age: 31 Year
  Sex: Male
  Weight: 77 kg

DRUGS (2)
  1. AVONEX [Suspect]
     Indication: RELAPSING-REMITTING MULTIPLE SCLEROSIS
     Route: 030
     Dates: start: 20090724, end: 20100201
  2. AVONEX [Suspect]
     Route: 030
     Dates: start: 20100301

REACTIONS (4)
  - FATIGUE [None]
  - INFLUENZA [None]
  - NIGHT SWEATS [None]
  - PHOBIA [None]
